FAERS Safety Report 6263778-0 (Version None)
Quarter: 2009Q3

REPORT INFORMATION
  Report Type: 
  Country: None (occurrence: None)
  Receive Date: 20090710
  Receipt Date: 20090707
  Transmission Date: 20100115
  Serious: Yes (Death, Hospitalization)
  Sender: FDA-Public Use
  Company Number: PHHY2009CA22118

PATIENT
  Sex: Female

DRUGS (1)
  1. SANDOSTATIN LAR [Suspect]
     Indication: PANCREATIC NEUROENDOCRINE TUMOUR
     Dosage: 20 MG, EVERY 2 WEEKS
     Route: 030
     Dates: start: 20000704, end: 20090513

REACTIONS (11)
  - ANAEMIA [None]
  - ASTHENIA [None]
  - BLOOD GLUCOSE DECREASED [None]
  - CYST [None]
  - DEATH [None]
  - DEHYDRATION [None]
  - JAUNDICE [None]
  - MECHANICAL VENTILATION [None]
  - PULMONARY HAEMORRHAGE [None]
  - PYREXIA [None]
  - SLEEP DISORDER [None]
